FAERS Safety Report 20210526 (Version 1)
Quarter: 2021Q4

REPORT INFORMATION
  Report Type: Spontaneous
  Country: US (occurrence: US)
  Receive Date: 20211221
  Receipt Date: 20211221
  Transmission Date: 20220303
  Serious: No
  Sender: FDA-Public Use
  Company Number: US-AMGEN-USASP2021200845

PATIENT
  Age: 73 Year
  Sex: Female

DRUGS (4)
  1. OTEZLA [Suspect]
     Active Substance: APREMILAST
     Indication: Psoriasis
     Dosage: 30 MILLIGRAM, BID
     Route: 048
     Dates: start: 20171004
  2. ASPIRIN [Concomitant]
     Active Substance: ASPIRIN
  3. CALCIUM +D [CALCIUM;ERGOCALCIFEROL] [Concomitant]
     Dosage: 500-4000
  4. IRON\VITAMINS [Concomitant]
     Active Substance: IRON\VITAMINS
     Dosage: 325 MILLIGRAM

REACTIONS (1)
  - Psoriasis [Recovered/Resolved]

NARRATIVE: CASE EVENT DATE: 20211215
